FAERS Safety Report 6497960-4 (Version None)
Quarter: 2009Q4

REPORT INFORMATION
  Report Type: 
  Country: None (occurrence: None)
  Receive Date: 20091215
  Receipt Date: 20091210
  Transmission Date: 20100525
  Serious: Yes (Hospitalization)
  Sender: FDA-Public Use
  Company Number: DE-ROCHE-664787

PATIENT
  Sex: Female
  Weight: 79 kg

DRUGS (6)
  1. TRASTUZUMAB [Suspect]
     Dosage: TOTAL DOSE: 504 MG; FORM: VIALS, LAST DOSE PRIOR TO SAE:13 JULY 2009
     Route: 042
     Dates: start: 20090318
  2. DOCETAXEL [Suspect]
     Dosage: TOTAL DOSE: 147 MG; FORM: VIALS LAST DOSE PRIOR TO SAE: 13 JULY 2009.
     Route: 042
     Dates: start: 20090313
  3. CARBOPLATIN [Suspect]
     Dosage: DOSE LEVEL: 6 AUC, FORM: VIALS,LAST DOSE PRIOR TO SAE: 13 JULY 2009.
     Route: 042
     Dates: start: 20090313
  4. ATACAND HCT [Concomitant]
     Indication: HYPERTONIA
     Dates: start: 20000401
  5. SIMVASTATIN [Concomitant]
     Dates: start: 20000401
  6. PANTOZOL [Concomitant]
     Dates: start: 20090628

REACTIONS (3)
  - DIARRHOEA [None]
  - NEUTROPENIA [None]
  - SYNCOPE [None]
